FAERS Safety Report 8503160-6 (Version None)
Quarter: 2012Q3

REPORT INFORMATION
  Report Type: 
  Country: None (occurrence: None)
  Receive Date: 20120711
  Receipt Date: 20120706
  Transmission Date: 20120928
  Serious: No
  Sender: FDA-Public Use
  Company Number: US-PFIZER INC-2012163179

PATIENT
  Sex: Male

DRUGS (4)
  1. FLECTOR [Suspect]
     Indication: LUMBAR SPINAL STENOSIS
  2. ACETAMINOPHEN [Suspect]
     Indication: PAIN
     Dosage: UNK, 4X/DAY
  3. FLECTOR [Suspect]
     Indication: INTERVERTEBRAL DISC PROTRUSION
  4. FLECTOR [Suspect]
     Indication: BACK PAIN
     Dosage: UNK

REACTIONS (1)
  - DRUG INEFFECTIVE [None]
